FAERS Safety Report 8859700 (Version 1)
Quarter: 2012Q4

REPORT INFORMATION
  Report Type: 
  Country: US (occurrence: US)
  Receive Date: 20121025
  Receipt Date: 20121025
  Transmission Date: 20130627
  Serious: No
  Sender: FDA-Public Use
  Company Number: US-ABBOTT-12P-163-0935634-00

PATIENT
  Sex: Female
  Weight: 63.56 kg

DRUGS (5)
  1. LUPRON DEPOT 3.75 MG [Suspect]
     Indication: UTERINE LEIOMYOMA
     Route: 030
     Dates: start: 201111, end: 201204
  2. LUPRON DEPOT 3.75 MG [Suspect]
     Indication: ENDOMETRIOSIS
  3. ALDACTONE [Concomitant]
     Indication: SKIN DISORDER
  4. CEFADROXIL [Concomitant]
     Indication: SKIN DISORDER
  5. CEFADROXIL [Concomitant]
     Indication: ACNE CYSTIC

REACTIONS (1)
  - Weight increased [Not Recovered/Not Resolved]
